FAERS Safety Report 9862474 (Version 2)
Quarter: 2014Q1

REPORT INFORMATION
  Report Type: Spontaneous
  Country: US (occurrence: US)
  Receive Date: 20140203
  Receipt Date: 20140205
  Transmission Date: 20141002
  Serious: No
  Sender: FDA-Public Use
  Company Number: US-TEVA-459621USA

PATIENT
  Sex: Female

DRUGS (2)
  1. PROAIR HFA [Suspect]
     Indication: RHINITIS ALLERGIC
  2. PROAIR HFA [Suspect]
     Indication: COUGH

REACTIONS (1)
  - Off label use [Unknown]
